FAERS Safety Report 25906043 (Version 1)
Quarter: 2025Q4

REPORT INFORMATION
  Report Type: Spontaneous
  Country: US (occurrence: None)
  Receive Date: 20251010
  Receipt Date: 20251010
  Transmission Date: 20260118
  Serious: Yes (Death)
  Sender: FDA-CTU
  Company Number: None

PATIENT
  Age: 75 Year
  Sex: Female
  Weight: 56.9 kg

DRUGS (6)
  1. BENDAMUSTINE HYDROCHLORIDE [Suspect]
     Active Substance: BENDAMUSTINE HYDROCHLORIDE
     Indication: Neoplasm malignant
     Dates: end: 20111017
  2. RITUXIMAB [Suspect]
     Active Substance: RITUXIMAB
     Indication: Neoplasm malignant
     Dates: end: 20130917
  3. VELCADE [Suspect]
     Active Substance: BORTEZOMIB
     Indication: Neoplasm malignant
     Dates: end: 20111017
  4. CARBOPLATIN [Suspect]
     Active Substance: CARBOPLATIN
  5. ETOPOSIDE [Suspect]
     Active Substance: ETOPOSIDE
  6. ATEZOLIZUMAB [Suspect]
     Active Substance: ATEZOLIZUMAB

REACTIONS (2)
  - Metastases to central nervous system [None]
  - Small cell lung cancer metastatic [None]

NARRATIVE: CASE EVENT DATE: 20250101
